FAERS Safety Report 19659220 (Version 1)
Quarter: 2021Q3

REPORT INFORMATION
  Report Type: Spontaneous
  Country: US (occurrence: US)
  Receive Date: 20210805
  Receipt Date: 20210805
  Transmission Date: 20211014
  Serious: No
  Sender: FDA-Public Use
  Company Number: US-DRREDDYS-SPO/USA/21/0138455

PATIENT
  Age: 60 Year
  Sex: Female

DRUGS (3)
  1. ESTRADIOL CYPIONATE [Concomitant]
     Active Substance: ESTRADIOL CYPIONATE
     Indication: HYSTERECTOMY
  2. LEVOTHYROXINE SODIUM. [Suspect]
     Active Substance: LEVOTHYROXINE SODIUM
     Indication: PRODUCT USED FOR UNKNOWN INDICATION
     Dosage: 100 MCG/VIAL
     Dates: start: 2019
  3. LISINOPRIL. [Concomitant]
     Active Substance: LISINOPRIL
     Indication: HYPERTENSION

REACTIONS (6)
  - Arthritis [Unknown]
  - Paraesthesia [Unknown]
  - Pain [Unknown]
  - Gait disturbance [Unknown]
  - Pain in extremity [Unknown]
  - Bone pain [Unknown]
